FAERS Safety Report 19317800 (Version 1)
Quarter: 2021Q2

REPORT INFORMATION
  Report Type: Spontaneous
  Country: US (occurrence: US)
  Receive Date: 20210528
  Receipt Date: 20210528
  Transmission Date: 20210717
  Serious: No
  Sender: FDA-Public Use
  Company Number: US-CELGENEUS-USA-20210505760

PATIENT
  Sex: Female

DRUGS (3)
  1. REVLIMID [Suspect]
     Active Substance: LENALIDOMIDE
     Dosage: 5 MILLIGRAM
     Route: 048
     Dates: start: 201610
  2. REVLIMID [Suspect]
     Active Substance: LENALIDOMIDE
     Indication: PLASMA CELL MYELOMA
     Dosage: 10 MG?25 MG
     Route: 048
     Dates: start: 201502
  3. REVLIMID [Suspect]
     Active Substance: LENALIDOMIDE
     Indication: MOVEMENT DISORDER
     Dosage: 25 MILLIGRAM
     Route: 048
     Dates: start: 201308

REACTIONS (1)
  - Tremor [Unknown]
